FAERS Safety Report 7819810-3 (Version None)
Quarter: 2011Q4

REPORT INFORMATION
  Report Type: 
  Country: None (occurrence: None)
  Receive Date: 20111018
  Receipt Date: 20101011
  Transmission Date: 20120403
  Serious: No
  Sender: FDA-Public Use
  Company Number: US-ASTRAZENECA-2010SE47955

PATIENT
  Age: 66 Year
  Sex: Female

DRUGS (2)
  1. OXYGEN [Concomitant]
  2. SYMBICORT [Suspect]
     Indication: ASTHMA
     Dosage: TOTAL DAILY DOSE 640 MCG, TWO TIMES A DAY
     Route: 055

REACTIONS (1)
  - DYSPNOEA [None]
